FAERS Safety Report 17104729 (Version 1)
Quarter: 2019Q4

REPORT INFORMATION
  Report Type: Spontaneous
  Country: US (occurrence: US)
  Receive Date: 20191107
  Receipt Date: 20191107
  Transmission Date: 20200122
  Serious: Yes (Disabling, Other)
  Sender: FDA-Public Use
  Company Number: None

PATIENT
  Age: 44 Year
  Sex: Female
  Weight: 121.56 kg

DRUGS (13)
  1. FLONASE [Concomitant]
     Active Substance: FLUTICASONE PROPIONATE
  2. PROBIOTICS [Concomitant]
     Active Substance: PROBIOTICS NOS
  3. COENZYME Q10 [Concomitant]
     Active Substance: UBIDECARENONE
  4. VICKS VAPOPADS [Concomitant]
     Active Substance: CEDAR LEAF OIL\ETHYLENE GLYCOL\EUCALYPTUS OIL\MENTHOL
  5. TYLENOL [Concomitant]
     Active Substance: ACETAMINOPHEN
  6. FISH OILS [Concomitant]
  7. GABPENTIN [Concomitant]
  8. SUCRALFATE. [Suspect]
     Active Substance: SUCRALFATE
     Indication: PEPTIC ULCER
     Dosage: ?          QUANTITY:60/120;?
     Route: 048
     Dates: start: 20190824, end: 20190902
  9. VITAMINS [Concomitant]
     Active Substance: VITAMINS
  10. KRILL FISH OIL [Concomitant]
  11. DULERA [Concomitant]
     Active Substance: FORMOTEROL FUMARATE DIHYDRATE\MOMETASONE FUROATE
  12. CALOMIN LOTION [Concomitant]
  13. ADVIL [Concomitant]
     Active Substance: IBUPROFEN

REACTIONS (3)
  - Diarrhoea [None]
  - Gallbladder disorder [None]
  - Vomiting [None]

NARRATIVE: CASE EVENT DATE: 20190901
